FAERS Safety Report 21066917 (Version 2)
Quarter: 2022Q4

REPORT INFORMATION
  Report Type: Spontaneous
  Country: US (occurrence: US)
  Receive Date: 20220712
  Receipt Date: 20221011
  Transmission Date: 20230112
  Serious: No
  Sender: FDA-Public Use
  Company Number: US-NOVARTISTESTPH-NVSC2022US157516

PATIENT
  Sex: Male
  Weight: 32 kg

DRUGS (4)
  1. ILARIS [Suspect]
     Active Substance: CANAKINUMAB
     Indication: Familial cold autoinflammatory syndrome
     Dosage: UNK
     Route: 065
  2. ILARIS [Suspect]
     Active Substance: CANAKINUMAB
     Indication: Pyrexia
     Dosage: UNK
     Route: 065
     Dates: start: 202206
  3. ILARIS [Suspect]
     Active Substance: CANAKINUMAB
     Dosage: UNK
     Route: 065
     Dates: start: 20220705
  4. ILARIS [Suspect]
     Active Substance: CANAKINUMAB
     Dosage: 65 MG (0.43 ML, EVERY 28 DAY, RIGHT ARM, DATE: OCT 2022)
     Route: 058

REACTIONS (3)
  - Pyrexia [Unknown]
  - Ear infection [Recovered/Resolved]
  - Tonsillitis [Unknown]
